FAERS Safety Report 4380718-X (Version None)
Quarter: 2004Q2

REPORT INFORMATION
  Report Type: 
  Country: None (occurrence: None)
  Receive Date: 20040614
  Receipt Date: 20040603
  Transmission Date: 20050107
  Serious: Yes (Hospitalization)
  Sender: FDA-Public Use
  Company Number: US-JNJFOC-20040601389

PATIENT
  Age: 47 Year
  Sex: Female

DRUGS (3)
  1. DURAGESIC [Suspect]
     Indication: PAIN
     Dosage: 125 UG/HR, 1 IN 72 HOUR, TRANSDERMAL
     Route: 062
     Dates: start: 19940101
  2. NEURONTIN [Concomitant]
  3. TYLENOL #4 (ACETAMINOPHEN/CODEINE) [Concomitant]

REACTIONS (2)
  - ACCIDENT [None]
  - BACK INJURY [None]
